FAERS Safety Report 24244408 (Version 1)
Quarter: 2024Q3

REPORT INFORMATION
  Report Type: Spontaneous
  Country: US (occurrence: None)
  Receive Date: 20240822
  Receipt Date: 20240822
  Transmission Date: 20241016
  Serious: No
  Sender: Public
  Company Number: None

PATIENT
  Age: 68 Year
  Sex: Female

DRUGS (2)
  1. GLIMEPIRIDE\METFORMIN [Suspect]
     Active Substance: GLIMEPIRIDE\METFORMIN
  2. INSULIN HUMAN [Suspect]
     Active Substance: INSULIN HUMAN

REACTIONS (8)
  - Groin pain [None]
  - Swelling [None]
  - Micturition frequency decreased [None]
  - Dysuria [None]
  - Oedema peripheral [None]
  - Blood glucose increased [None]
  - Product prescribing issue [None]
  - Underdose [None]
